FAERS Safety Report 18944904 (Version 1)
Quarter: 2021Q1

REPORT INFORMATION
  Report Type: Spontaneous
  Country: NL (occurrence: NL)
  Receive Date: 20210226
  Receipt Date: 20210226
  Transmission Date: 20210420
  Serious: Yes (Other)
  Sender: FDA-Public Use
  Company Number: NL-SA-2021SA057056

PATIENT

DRUGS (1)
  1. TRIAMCINOLONE ACETONIDE. [Suspect]
     Active Substance: TRIAMCINOLONE ACETONIDE
     Indication: GASTROINTESTINAL ANASTOMOTIC STENOSIS
     Dosage: 80 MG

REACTIONS (2)
  - Gastric ischaemia [Unknown]
  - Mucosal discolouration [Unknown]
